FAERS Safety Report 24978014 (Version 1)
Quarter: 2025Q1

REPORT INFORMATION
  Report Type: Spontaneous
  Country: PR (occurrence: PR)
  Receive Date: 20250217
  Receipt Date: 20250217
  Transmission Date: 20250408
  Serious: No
  Sender: PERRIGO
  Company Number: PR-PERRIGO-24PR009236

PATIENT
  Age: 55 Year
  Sex: Male
  Weight: 86.168 kg

DRUGS (2)
  1. NICOTINE POLACRILEX [Suspect]
     Active Substance: NICOTINE
     Indication: Smoking cessation therapy
     Route: 048
     Dates: start: 20240928, end: 20240928
  2. NICOTINE POLACRILEX [Suspect]
     Active Substance: NICOTINE
     Route: 048
     Dates: start: 20240928, end: 20240928

REACTIONS (6)
  - Pharyngeal hypoaesthesia [Not Recovered/Not Resolved]
  - Amnesia [Recovered/Resolved]
  - Depressed mood [Not Recovered/Not Resolved]
  - Hiccups [Recovered/Resolved]
  - Wrong technique in product usage process [Unknown]
  - Incorrect dose administered [Unknown]

NARRATIVE: CASE EVENT DATE: 20240928
